FAERS Safety Report 20136063 (Version 1)
Quarter: 2021Q4

REPORT INFORMATION
  Report Type: Spontaneous
  Country: US (occurrence: US)
  Receive Date: 20211201
  Receipt Date: 20211201
  Transmission Date: 20220303
  Serious: No
  Sender: FDA-Public Use
  Company Number: US-MYLANLABS-2021M1079512

PATIENT
  Sex: Female

DRUGS (1)
  1. DIMETHYL FUMARATE [Suspect]
     Active Substance: DIMETHYL FUMARATE
     Indication: Product used for unknown indication
     Dosage: 240 MILLIGRAM

REACTIONS (5)
  - Breast pain [Unknown]
  - Pain in extremity [Unknown]
  - Arthralgia [Unknown]
  - Disease recurrence [Unknown]
  - Drug ineffective [Unknown]
